FAERS Safety Report 8556700-5 (Version None)
Quarter: 2012Q3

REPORT INFORMATION
  Report Type: 
  Country: None (occurrence: None)
  Receive Date: 20120801
  Receipt Date: 20120723
  Transmission Date: 20120928
  Serious: Yes (Other)
  Sender: FDA-Public Use
  Company Number: JP-ASTELLAS-2012JP005701

PATIENT
  Sex: Male

DRUGS (3)
  1. PROGRAF [Suspect]
     Indication: RHEUMATOID ARTHRITIS
     Dosage: 1.5 MG, UNKNOWN/D
     Route: 048
  2. RHEUMATREX [Suspect]
     Dosage: UNK
     Route: 048
  3. RHEUMATREX [Suspect]
     Dosage: 4 MG, WEEKLY
     Route: 048

REACTIONS (1)
  - RENAL DISORDER [None]
